FAERS Safety Report 10363063 (Version 3)
Quarter: 2014Q3

REPORT INFORMATION
  Report Type: Spontaneous
  Country: BR (occurrence: BR)
  Receive Date: 20140805
  Receipt Date: 20140828
  Transmission Date: 20150326
  Serious: Yes (Death, Hospitalization, Other)
  Sender: FDA-Public Use
  Company Number: BR-ELI_LILLY_AND_COMPANY-BR201407011027

PATIENT
  Age: 87 Year
  Sex: Female
  Weight: 45 kg

DRUGS (2)
  1. FORTEO [Suspect]
     Active Substance: TERIPARATIDE
     Indication: OSTEOPOROSIS
     Dosage: UNK, QD
     Route: 058
     Dates: end: 20140506
  2. RITMONORM [Concomitant]
     Indication: ARRHYTHMIA
     Dosage: UNK, EACH MORNING
     Route: 065

REACTIONS (15)
  - Gastrooesophageal reflux disease [Unknown]
  - Infection [Fatal]
  - Femur fracture [Unknown]
  - Lacrimation increased [Unknown]
  - Shock [Unknown]
  - Aphasia [Unknown]
  - Respiratory failure [Fatal]
  - Renal disorder [Unknown]
  - Arrhythmia [Fatal]
  - Infarction [Fatal]
  - Lung disorder [Unknown]
  - Fall [Unknown]
  - Bladder dilatation [Unknown]
  - Balance disorder [Unknown]
  - Vomiting [Unknown]

NARRATIVE: CASE EVENT DATE: 20140505
